FAERS Safety Report 4719938-0 (Version None)
Quarter: 2005Q3

REPORT INFORMATION
  Report Type: 
  Country: None (occurrence: None)
  Receive Date: 20050721
  Receipt Date: 20050201
  Transmission Date: 20060218
  Serious: No
  Sender: FDA-Public Use
  Company Number: US-GLAXOSMITHKLINE-A0543290A

PATIENT
  Age: 64 Year
  Sex: Male

DRUGS (12)
  1. AVANDIA [Suspect]
     Dosage: 8MG PER DAY
     Route: 048
     Dates: start: 19980101
  2. GLUCOTROL XL [Concomitant]
  3. ALTACE [Concomitant]
  4. UNKNOWN MEDICATION [Concomitant]
  5. LASIX [Concomitant]
  6. LIPITOR [Concomitant]
  7. LEXAPRO [Concomitant]
  8. LORAZEPAM [Concomitant]
  9. ASPIRIN [Concomitant]
  10. TRAVATAN [Concomitant]
  11. OLIVIN [Concomitant]
  12. ANTIBIOTICS [Concomitant]

REACTIONS (1)
  - WEIGHT INCREASED [None]
